FAERS Safety Report 20416788 (Version 2)
Quarter: 2022Q1

REPORT INFORMATION
  Report Type: Spontaneous
  Country: AR (occurrence: None)
  Receive Date: 20220202
  Receipt Date: 20220211
  Transmission Date: 20220424
  Serious: Yes (Other)
  Sender: FDA-Public Use
  Company Number: 2022A046860

PATIENT
  Age: 73 Year
  Sex: Female
  Weight: 90 kg

DRUGS (9)
  1. DAPAGLIFLOZIN [Suspect]
     Active Substance: DAPAGLIFLOZIN
     Indication: Diabetes mellitus
     Route: 048
  2. DAPAGLIFLOZIN [Suspect]
     Active Substance: DAPAGLIFLOZIN
     Indication: Chronic kidney disease
     Route: 048
  3. LECARDIPINE [Concomitant]
  4. ERGOCALCIFEROL [Concomitant]
     Active Substance: ERGOCALCIFEROL
  5. NIMODIPINE [Concomitant]
     Active Substance: NIMODIPINE
  6. LOSARTAN [Concomitant]
     Active Substance: LOSARTAN
  7. CARVEDILOL [Concomitant]
     Active Substance: CARVEDILOL
  8. INSULIN/ METFORMIN [Concomitant]
  9. SERETIDE [Concomitant]
     Active Substance: FLUTICASONE PROPIONATE\SALMETEROL XINAFOATE

REACTIONS (4)
  - Renal impairment [Recovered/Resolved]
  - Blood creatine increased [Unknown]
  - Rash pruritic [Recovered/Resolved]
  - Oedema peripheral [Recovered/Resolved]

NARRATIVE: CASE EVENT DATE: 20211212
